FAERS Safety Report 21670456 (Version 1)
Quarter: 2022Q4

REPORT INFORMATION
  Report Type: Spontaneous
  Country: US (occurrence: US)
  Receive Date: 20221201
  Receipt Date: 20221201
  Transmission Date: 20230112
  Serious: Yes (Other)
  Sender: FDA-Public Use
  Company Number: US-BRISTOL-MYERS SQUIBB COMPANY-2022-146323

PATIENT
  Age: 76 Year
  Sex: Male

DRUGS (7)
  1. REVLIMID [Suspect]
     Active Substance: LENALIDOMIDE
     Indication: Plasma cell myeloma
     Dosage: DAILY
     Route: 048
     Dates: start: 20221107
  2. METOPROLOL [Concomitant]
     Active Substance: METOPROLOL
  3. PRAVASTATIN [Concomitant]
     Active Substance: PRAVASTATIN
  4. HYDROCHLOROTHIAZIDE\LISINOPRIL [Concomitant]
     Active Substance: HYDROCHLOROTHIAZIDE\LISINOPRIL
  5. DOXYCYCLINE [Concomitant]
     Active Substance: DOXYCYCLINE
  6. HUMIRA [Concomitant]
     Active Substance: ADALIMUMAB
  7. DEXAMETHASONE [Concomitant]
     Active Substance: DEXAMETHASONE

REACTIONS (3)
  - Renal impairment [Unknown]
  - Feeling abnormal [Unknown]
  - Haemoglobin decreased [Unknown]

NARRATIVE: CASE EVENT DATE: 20221121
